FAERS Safety Report 20773686 (Version 3)
Quarter: 2023Q2

REPORT INFORMATION
  Report Type: Spontaneous
  Country: AT (occurrence: None)
  Receive Date: 20220502
  Receipt Date: 20230509
  Transmission Date: 20230722
  Serious: Yes (Hospitalization, Other)
  Sender: FDA-Public Use
  Company Number: AT-ROCHE-3087918

PATIENT
  Age: 69 Year
  Sex: Female

DRUGS (3)
  1. TECENTRIQ [Suspect]
     Active Substance: ATEZOLIZUMAB
     Indication: Small cell lung cancer extensive stage
     Dosage: C25 ON 07/FEB/2022
     Route: 042
     Dates: start: 20200814
  2. CARBOPLATIN [Suspect]
     Active Substance: CARBOPLATIN
     Indication: Small cell lung cancer extensive stage
     Route: 065
     Dates: start: 20200814
  3. ETOPOSIDE [Suspect]
     Active Substance: ETOPOSIDE
     Indication: Small cell lung cancer extensive stage
     Route: 065
     Dates: start: 20200814

REACTIONS (4)
  - Pneumonitis [Recovered/Resolved]
  - Dyspnoea [Unknown]
  - Atypical pneumonia [Unknown]
  - Lymphangitis [Unknown]

NARRATIVE: CASE EVENT DATE: 20220216
